FAERS Safety Report 7593034-X (Version None)
Quarter: 2011Q3

REPORT INFORMATION
  Report Type: 
  Country: None (occurrence: None)
  Receive Date: 20110706
  Receipt Date: 20110621
  Transmission Date: 20111222
  Serious: Yes (Hospitalization, Other)
  Sender: FDA-Public Use
  Company Number: FR-ROCHE-781818

PATIENT
  Sex: Female
  Weight: 63 kg

DRUGS (5)
  1. NILOTINIB [Suspect]
     Route: 048
     Dates: start: 20110512, end: 20110607
  2. ADVIL LIQUI-GELS [Concomitant]
     Dosage: TDD REPORTED AS PRN
  3. PEGINTERFERON ALFA-2A [Suspect]
     Route: 058
     Dates: start: 20110414, end: 20110607
  4. METHERGINE [Concomitant]
  5. ALLOPURINOL [Concomitant]
     Dosage: TOTAL DAILY DOSE: 1/DAY
     Dates: start: 20110215

REACTIONS (3)
  - ANAEMIA [None]
  - THROMBOCYTOPENIA [None]
  - SHOCK HAEMORRHAGIC [None]
